FAERS Safety Report 16257326 (Version 1)
Quarter: 2019Q2

REPORT INFORMATION
  Report Type: Spontaneous
  Country: MX (occurrence: MX)
  Receive Date: 20190430
  Receipt Date: 20190430
  Transmission Date: 20190711
  Serious: Yes (Other)
  Sender: FDA-Public Use
  Company Number: MX-PFIZER INC-2019181208

PATIENT
  Sex: Male

DRUGS (1)
  1. ETURION [Suspect]
     Active Substance: ATORVASTATIN CALCIUM
     Dosage: UNK
     Dates: start: 201810

REACTIONS (2)
  - Syncope [Unknown]
  - Muscle spasms [Unknown]
